FAERS Safety Report 9673316 (Version 2)
Quarter: 2013Q4

REPORT INFORMATION
  Report Type: Spontaneous
  Country: US (occurrence: US)
  Receive Date: 20131106
  Receipt Date: 20131106
  Transmission Date: 20140711
  Serious: No
  Sender: FDA-Public Use
  Company Number: US-AMGEN-USASP2013067354

PATIENT
  Age: 0 Day
  Sex: 0

DRUGS (1)
  1. ENBREL [Suspect]
     Dosage: 50 MG, QWK
     Route: 063
     Dates: start: 20130708

REACTIONS (1)
  - Exposure during breast feeding [Recovered/Resolved]
